FAERS Safety Report 7404963-1 (Version None)
Quarter: 2011Q2

REPORT INFORMATION
  Report Type: 
  Country: None (occurrence: None)
  Receive Date: 20110411
  Receipt Date: 20110330
  Transmission Date: 20111010
  Serious: Yes (Death, Hospitalization)
  Sender: FDA-Public Use
  Company Number: BR-ELI_LILLY_AND_COMPANY-BR201102004970

PATIENT
  Sex: Female
  Weight: 38 kg

DRUGS (5)
  1. FORTEO [Suspect]
     Indication: SPINAL FRACTURE
     Dosage: 20 UG, QD
     Route: 065
     Dates: start: 20101101, end: 20110213
  2. MEMANTINE [Concomitant]
     Indication: SENILE DEMENTIA
  3. ENALAPRIL MALEATE [Concomitant]
     Indication: HYPERTENSION
     Dosage: 10 MG, UNKNOWN
     Route: 065
  4. RISPERIDONE [Concomitant]
     Indication: SENILE DEMENTIA
     Dosage: UNK, UNKNOWN
     Route: 065
  5. LEXOTAN [Concomitant]
     Indication: SENILE DEMENTIA

REACTIONS (4)
  - CARDIOGENIC SHOCK [None]
  - CEREBROVASCULAR ACCIDENT [None]
  - HYPERTENSION [None]
  - ARTERIOSCLEROSIS [None]
